FAERS Safety Report 5225660-7 (Version None)
Quarter: 2007Q1

REPORT INFORMATION
  Report Type: 
  Country: None (occurrence: None)
  Receive Date: 20061201
  Receipt Date: 20061109
  Transmission Date: 20070707
  Serious: No
  Sender: FDA-Public Use
  Company Number: US200605002184

PATIENT
  Sex: Female
  Weight: 113.4 kg

DRUGS (12)
  1. HUMATROPE [Suspect]
     Indication: BLOOD GROWTH HORMONE DECREASED
     Dosage: SEE IMAGE
     Dates: start: 20050101
  2. HUMATROPE [Suspect]
     Indication: BLOOD GROWTH HORMONE DECREASED
     Dosage: SEE IMAGE
     Dates: start: 20050101
  3. HUMATROPE [Suspect]
  4. CYMBALTA [Suspect]
     Indication: CHRONIC FATIGUE SYNDROME
     Dosage: 60 MG, DAILY (1/D)
     Dates: start: 20051201
  5. KLONOPIN [Concomitant]
  6. OXAPROZIN [Concomitant]
  7. CELEBREX [Concomitant]
  8. SYNTHROID [Concomitant]
  9. RANITIDINE [Concomitant]
  10. LORATADINE [Concomitant]
  11. CALCIUM CARBONATE (CALCIUM CARBONATE) [Concomitant]
  12. CENTRUM (MINERALS NOS, VITAMINS NOS) [Concomitant]

REACTIONS (10)
  - BLOOD GROWTH HORMONE INCREASED [None]
  - FEELING ABNORMAL [None]
  - HEADACHE [None]
  - INJECTION SITE BRUISING [None]
  - INJECTION SITE PAIN [None]
  - NAUSEA [None]
  - OEDEMA PERIPHERAL [None]
  - SOMNOLENCE [None]
  - WEIGHT DECREASED [None]
  - WEIGHT INCREASED [None]
